FAERS Safety Report 7485991-7 (Version None)
Quarter: 2011Q2

REPORT INFORMATION
  Report Type: 
  Country: None (occurrence: None)
  Receive Date: 20110517
  Receipt Date: 20110504
  Transmission Date: 20111010
  Serious: Yes (Other)
  Sender: FDA-Public Use
  Company Number: US-BRACCO-004847

PATIENT
  Sex: Female

DRUGS (39)
  1. VITAMINS WITH MINERALS [Concomitant]
  2. EPOETIN NOS [Concomitant]
  3. LABETALOL [Concomitant]
  4. APO-DOXAZOSIN [Concomitant]
  5. PREDNISONE TAB [Concomitant]
  6. DOXAZOSIN MESYLATE [Concomitant]
  7. VITAMIN B COMPLEX CAP [Concomitant]
  8. LORAZEPAM [Concomitant]
  9. TUMS E-X [Concomitant]
  10. PROHANCE [Suspect]
     Indication: NUCLEAR MAGNETIC RESONANCE IMAGING BRAIN
     Route: 065
     Dates: start: 20060110, end: 20060110
  11. CALCIUM CARBONATE [Concomitant]
  12. FLUDROCORTISONE ACETATE [Concomitant]
  13. PROHANCE [Suspect]
     Indication: CENTRAL NERVOUS SYSTEM LESION
     Route: 065
     Dates: start: 20030114, end: 20030114
  14. CALCITRIOL [Concomitant]
  15. PROHANCE [Suspect]
     Indication: PHAEOCHROMOCYTOMA
     Route: 065
     Dates: start: 20000417, end: 20000417
  16. PROHANCE [Suspect]
     Indication: NUCLEAR MAGNETIC RESONANCE IMAGING
     Route: 065
     Dates: start: 20010810, end: 20010810
  17. PROHANCE [Suspect]
     Indication: SPINAL CORD DISORDER
     Route: 065
     Dates: start: 20000217, end: 20000217
  18. HEPARIN [Concomitant]
  19. ALENDRONATE SODIUM [Concomitant]
  20. CALCIJEX [Concomitant]
  21. PROHANCE [Suspect]
     Indication: NUCLEAR MAGNETIC RESONANCE IMAGING ABDOMINAL
     Route: 065
     Dates: start: 20000217, end: 20000217
  22. MAGNEVIST [Suspect]
     Indication: NUCLEAR MAGNETIC RESONANCE IMAGING BRAIN
     Route: 042
     Dates: start: 20000714, end: 20000714
  23. SSKI [Concomitant]
  24. PHENOXYBENZAMINE [Concomitant]
  25. DIPHENHYDRAMINE HYDROCHLORIDE [Concomitant]
  26. HEPARIN SODIUM [Concomitant]
  27. GADOLINIUM [Suspect]
     Indication: NUCLEAR MAGNETIC RESONANCE IMAGING ABDOMINAL
     Route: 065
     Dates: start: 20061001, end: 20061001
  28. MAGNEVIST [Suspect]
     Indication: NERVOUS SYSTEM DISORDER
     Route: 042
     Dates: start: 20000714, end: 20000714
  29. EPOGEN [Concomitant]
  30. VENOFER [Concomitant]
  31. HYDROCORTISONE [Concomitant]
  32. ATENOLOL [Concomitant]
  33. FLUDROCORTISONE ACETATE [Concomitant]
  34. EPREX [Concomitant]
  35. RABEPRAZOLE SODIUM [Concomitant]
  36. IBUPROFEN [Concomitant]
  37. HYDROCORTISONE [Concomitant]
  38. CIPROFLOXACIN [Concomitant]
  39. FLUTICASONE PROPIONATE [Concomitant]

REACTIONS (1)
  - NEPHROGENIC SYSTEMIC FIBROSIS [None]
